FAERS Safety Report 13504840 (Version 2)
Quarter: 2017Q4

REPORT INFORMATION
  Report Type: Spontaneous
  Country: US (occurrence: US)
  Receive Date: 20170502
  Receipt Date: 20171024
  Transmission Date: 20180320
  Serious: No
  Sender: FDA-Public Use
  Company Number: US-IMPAX LABORATORIES, INC-2017-IPXL-00436

PATIENT
  Sex: Female
  Weight: 72 kg

DRUGS (7)
  1. SINEMET [Suspect]
     Active Substance: CARBIDOPA\LEVODOPA
     Dosage: 2 DF, DAILY
     Route: 048
  2. SINEMET [Suspect]
     Active Substance: CARBIDOPA\LEVODOPA
     Dosage: TOOK SINEMET AT 09:30 AM OR 10:00 AM, AND AT 04:00 PM OCCASIONALLY
     Route: 048
  3. SINEMET [Suspect]
     Active Substance: CARBIDOPA\LEVODOPA
     Indication: PARKINSON^S DISEASE
     Dosage: 25/100MG, HALF OR ONE PILL TO ONE OF THE FOUR DOSES OF RYTARY
     Route: 048
  4. AZILECT [Concomitant]
     Active Substance: RASAGILINE MESYLATE
     Indication: PRODUCT USED FOR UNKNOWN INDICATION
     Dosage: UNK UNK, DAILY
     Route: 065
  5. SINEMET [Suspect]
     Active Substance: CARBIDOPA\LEVODOPA
     Dosage: UNK, 2 /DAY
     Route: 048
  6. RYTARY [Suspect]
     Active Substance: CARBIDOPA\LEVODOPA
     Indication: PARKINSON^S DISEASE
     Dosage: 23.7/95 MG, THREE TIMES DAILY
     Route: 048
     Dates: start: 201603
  7. RYTARY [Suspect]
     Active Substance: CARBIDOPA\LEVODOPA
     Dosage: 36.25/145 MG 1 CAPSULE 4 TIMES A DAY (06:00 AM, 11:00 AM, 04:00 PM, AND 09:00 PM)
     Route: 048

REACTIONS (3)
  - Orthostatic hypotension [Unknown]
  - Intentional underdose [Unknown]
  - Tremor [Unknown]

NARRATIVE: CASE EVENT DATE: 2016
